FAERS Safety Report 14566647 (Version 2)
Quarter: 2018Q1

REPORT INFORMATION
  Report Type: Spontaneous
  Country: DE (occurrence: DE)
  Receive Date: 20180223
  Receipt Date: 20180304
  Transmission Date: 20180509
  Serious: Yes (Other)
  Sender: FDA-Public Use
  Company Number: PHHY2018DE027664

PATIENT
  Age: 84 Year
  Sex: Female

DRUGS (2)
  1. DABRAFENIB [Suspect]
     Active Substance: DABRAFENIB
     Indication: MALIGNANT MELANOMA
     Dosage: 300 MG, QD
     Route: 065
     Dates: start: 201512, end: 201512
  2. TRAMETINIB [Suspect]
     Active Substance: TRAMETINIB
     Indication: MALIGNANT MELANOMA
     Dosage: 2 MG, QD
     Route: 065
     Dates: start: 201512, end: 201512

REACTIONS (7)
  - Cardiac failure [Recovering/Resolving]
  - Pleural effusion [Recovering/Resolving]
  - Tricuspid valve incompetence [Unknown]
  - Tachycardia [Unknown]
  - Somnolence [Recovering/Resolving]
  - Gastritis haemorrhagic [Recovering/Resolving]
  - Atrial fibrillation [Recovering/Resolving]

NARRATIVE: CASE EVENT DATE: 20151201
